FAERS Safety Report 6375772-X (Version None)
Quarter: 2009Q3

REPORT INFORMATION
  Report Type: 
  Country: None (occurrence: None)
  Receive Date: 20090922
  Receipt Date: 20090922
  Transmission Date: 20100115
  Serious: No
  Sender: FDA-Public Use
  Company Number: None

PATIENT
  Age: 57 Year
  Sex: Female
  Weight: 52.1637 kg

DRUGS (2)
  1. THYROID TAB [Suspect]
     Indication: AUTOIMMUNE THYROIDITIS
     Dosage: 2 GRAINS PER DAY 1 GRAIN AM, 1GR PM
     Dates: start: 20060110, end: 20090920
  2. THYROID TAB [Suspect]
     Indication: GOITRE
     Dosage: 2 GRAINS PER DAY 1 GRAIN AM, 1GR PM
     Dates: start: 20060110, end: 20090920

REACTIONS (1)
  - NO ADVERSE EVENT [None]
